FAERS Safety Report 14825651 (Version 2)
Quarter: 2018Q2

REPORT INFORMATION
  Report Type: Report from Study
  Country: BE (occurrence: BE)
  Receive Date: 20180430
  Receipt Date: 20180515
  Transmission Date: 20180711
  Serious: Yes (Other)
  Sender: FDA-Public Use
  Company Number: BE-ROCHE-2112155

PATIENT

DRUGS (2)
  1. ALECENSA [Suspect]
     Active Substance: ALECTINIB HYDROCHLORIDE
     Indication: PRODUCT USED FOR UNKNOWN INDICATION
     Route: 065
  2. ALECENSA [Suspect]
     Active Substance: ALECTINIB HYDROCHLORIDE
     Dosage: FREQUENCY TIME: 1 DAYS?DOSAGE TEXT?(B.4.K.6):
     Route: 065
     Dates: start: 201804

REACTIONS (5)
  - Diarrhoea [Unknown]
  - Hepatic enzyme increased [Recovering/Resolving]
  - Dyspnoea [Unknown]
  - Myocardial necrosis marker increased [Recovering/Resolving]
  - Erythema [Unknown]
